FAERS Safety Report 9306293 (Version 2)
Quarter: 2013Q2

REPORT INFORMATION
  Report Type: Spontaneous
  Country: US (occurrence: None)
  Receive Date: 20130508
  Receipt Date: 20130520
  Transmission Date: 20140414
  Serious: Yes (Hospitalization)
  Sender: FDA-Public Use
  Company Number: 2013PROUSA02776

PATIENT
  Age: 56 Year
  Sex: Male
  Weight: 98.5 kg

DRUGS (7)
  1. PROVENGE [Suspect]
     Indication: PROSTATE CANCER METASTATIC
     Dosage: SINGLE
     Route: 042
     Dates: start: 20130315, end: 20130315
  2. SILDENAFIL [Concomitant]
  3. FENTANYL (FENTANYL CITRATE) [Concomitant]
  4. HYDROCODONE/ACETAMINOPHEN (HYDROCODONE BITARTRATE, PARACETAMOL) [Concomitant]
  5. HYDROCHLOROTHIAZIDE [Concomitant]
  6. LISINOPRIL [Concomitant]
  7. METFORMIN (METFORMIN HYDROCHLORIDE) [Concomitant]

REACTIONS (13)
  - Deep vein thrombosis [None]
  - Pulmonary embolism [None]
  - Pulmonary infarction [None]
  - Hyponatraemia [None]
  - Medical device complication [None]
  - Cholelithiasis [None]
  - Gout [None]
  - Pain [None]
  - Metastases to bone [None]
  - Decreased appetite [None]
  - Constipation [None]
  - Headache [None]
  - Pulmonary mass [None]
